FAERS Safety Report 7261122-3 (Version None)
Quarter: 2011Q1

REPORT INFORMATION
  Report Type: 
  Country: None (occurrence: None)
  Receive Date: 20110130
  Receipt Date: 20101229
  Transmission Date: 20110831
  Serious: No
  Sender: FDA-Public Use
  Company Number: US-ABBOTT-10P-163-0694380-00

PATIENT
  Age: 30 Year
  Sex: Female

DRUGS (6)
  1. HYDROCODONE [Concomitant]
     Indication: ARTHRALGIA
  2. MEDROL [Concomitant]
     Indication: PRODUCT USED FOR UNKNOWN INDICATION
     Route: 048
  3. HUMIRA [Suspect]
     Indication: RHEUMATOID ARTHRITIS
     Dates: start: 20101201
  4. METHOTREXATE [Concomitant]
     Indication: PRODUCT USED FOR UNKNOWN INDICATION
     Dosage: EIGHT 2.5MG TABLETS ONCE WEEKLY
     Route: 048
  5. HYDROCODONE [Concomitant]
     Indication: MYALGIA
     Route: 048
  6. FLEXERIL [Concomitant]
     Indication: MUSCLE SPASMS
     Dosage: DAILY
     Route: 048

REACTIONS (2)
  - VISION BLURRED [None]
  - RASH [None]
